FAERS Safety Report 12680641 (Version 8)
Quarter: 2017Q1

REPORT INFORMATION
  Report Type: Spontaneous
  Country: US (occurrence: US)
  Receive Date: 20160824
  Receipt Date: 20170317
  Transmission Date: 20170428
  Serious: Yes (Hospitalization, Other)
  Sender: FDA-Public Use
  Company Number: US-ACTELION-A-US2016-140949

PATIENT
  Age: 83 Year
  Sex: Female
  Weight: 83.9 kg

DRUGS (11)
  1. UPTRAVI [Suspect]
     Active Substance: SELEXIPAG
     Dosage: 1000 MCG, BID
     Route: 048
  2. TREPROSTINIL DIOLAMIN [Concomitant]
     Active Substance: TREPROSTINIL DIOLAMINE
  3. REVATIO [Concomitant]
     Active Substance: SILDENAFIL CITRATE
  4. SPIRONOLACTONE. [Concomitant]
     Active Substance: SPIRONOLACTONE
  5. UPTRAVI [Suspect]
     Active Substance: SELEXIPAG
     Indication: PULMONARY ARTERIAL HYPERTENSION
     Dosage: 200 MCG, BID
     Route: 048
     Dates: start: 201605, end: 201608
  6. UPTRAVI [Suspect]
     Active Substance: SELEXIPAG
     Dosage: 400 MCG, BID
     Route: 048
  7. OPSUMIT [Suspect]
     Active Substance: MACITENTAN
     Indication: PULMONARY ARTERIAL HYPERTENSION
     Dosage: 10 MG, QD
     Route: 048
     Dates: start: 201611
  8. UPTRAVI [Suspect]
     Active Substance: SELEXIPAG
     Dosage: 800 MCG, BID
     Route: 048
     Dates: start: 20160905
  9. WARFARIN [Concomitant]
     Active Substance: WARFARIN
  10. DILTIAZEM. [Concomitant]
     Active Substance: DILTIAZEM
  11. ADCIRCA [Concomitant]
     Active Substance: TADALAFIL

REACTIONS (29)
  - Oedema peripheral [Unknown]
  - Weight increased [Unknown]
  - Asthenia [Unknown]
  - Thrombosis [Unknown]
  - Pneumonia [Unknown]
  - Transfusion [Unknown]
  - Micturition disorder [Unknown]
  - Pyrexia [Unknown]
  - Diarrhoea [Unknown]
  - Dyspnoea [Unknown]
  - Atrial fibrillation [Unknown]
  - International normalised ratio increased [Unknown]
  - Loss of consciousness [Unknown]
  - Cardiac failure congestive [Unknown]
  - Abdominal distension [Unknown]
  - Pain in extremity [Unknown]
  - Headache [Unknown]
  - Fluid retention [Unknown]
  - Decreased appetite [Unknown]
  - Malaise [Unknown]
  - Chronic obstructive pulmonary disease [Unknown]
  - Pleural effusion [Not Recovered/Not Resolved]
  - Pallor [Unknown]
  - Renal failure [Unknown]
  - Haemoglobin decreased [Recovering/Resolving]
  - Chest pain [Unknown]
  - Nausea [Unknown]
  - Dizziness [Unknown]
  - Therapeutic response decreased [Unknown]

NARRATIVE: CASE EVENT DATE: 20160815
